FAERS Safety Report 11305589 (Version 1)
Quarter: 2015Q3

REPORT INFORMATION
  Report Type: Spontaneous
  Country: US (occurrence: US)
  Receive Date: 20150723
  Receipt Date: 20150723
  Transmission Date: 20151125
  Serious: No
  Sender: FDA-Public Use
  Company Number: US-JNJFOC-20150218999

PATIENT
  Age: 15 Year
  Sex: Male

DRUGS (8)
  1. MOTRIN [Suspect]
     Active Substance: IBUPROFEN
     Route: 065
  2. OMNICEF [Concomitant]
     Active Substance: CEFDINIR
     Indication: SINUSITIS
     Dosage: STARTED 6 DAYS AGO
     Route: 065
  3. ZYRTEC [Suspect]
     Active Substance: CETIRIZINE HYDROCHLORIDE
     Indication: SINUSITIS
     Route: 065
  4. CHILDREN^S SUDAFED NASAL DECONGESTANT GRAPE [Concomitant]
     Indication: SINUSITIS
     Dosage: DOSAGE - 4 TEASPOONS????INTERVAL - DAILY STARTED 6 DAYS AGO
     Route: 048
  5. ZYRTEC D ALLERGY AND CONGESTION [Concomitant]
     Active Substance: CETIRIZINE HYDROCHLORIDE\PSEUDOEPHEDRINE HYDROCHLORIDE
     Indication: SINUSITIS
     Dosage: STARTED 6 DAYS AGO
     Route: 065
  6. IBUPROFEN. [Concomitant]
     Active Substance: IBUPROFEN
     Indication: SINUSITIS
     Route: 065
  7. MOTRIN [Suspect]
     Active Substance: IBUPROFEN
     Indication: SINUSITIS
     Dosage: STARTED 6 DAYS AGO
     Route: 065
  8. ZYRTEC [Suspect]
     Active Substance: CETIRIZINE HYDROCHLORIDE
     Route: 065

REACTIONS (3)
  - Headache [Not Recovered/Not Resolved]
  - Product use issue [Unknown]
  - Pollakiuria [Not Recovered/Not Resolved]
